FAERS Safety Report 9258499 (Version 1)
Quarter: 2013Q1

REPORT INFORMATION
  Report Type: Spontaneous
  Country: US (occurrence: None)
  Receive Date: 20121212
  Receipt Date: 20121212
  Transmission Date: 20140127
  Serious: No
  Sender: FDA-Public Use
  Company Number: 1211USA003214

PATIENT
  Age: 64 Year
  Sex: Male

DRUGS (8)
  1. VICTRELIS [Suspect]
     Dosage: (NOT CODED)?TAKE 4 CAPSULES (800 MG) BY MOUTH THREE TIMES A DAY, ORAL
     Route: 048
  2. RIBAVIRIN [Suspect]
     Dosage: (NOT CODED)
  3. PEGASYS [Suspect]
     Dosage: (NOT CODED)?
  4. VITAMIN D (UNSPECIFIED) (VITAMIN D (UNSPECIFIED)) [Concomitant]
  5. ASPIRIN (ASPIRIN) TABLET [Concomitant]
  6. CITALOPRAM (CITALOPRAM) TABLET, 20 MG [Concomitant]
  7. NIFEDIPINE (NIFEDIPINE) CAPSULE, 20 MG [Concomitant]
  8. ATENOLOL (ATENOLOL) TABLET, 25 MG [Concomitant]

REACTIONS (1)
  - Decreased appetite [None]
